FAERS Safety Report 6717383-X (Version None)
Quarter: 2010Q2

REPORT INFORMATION
  Report Type: 
  Country: None (occurrence: None)
  Receive Date: 20100505
  Receipt Date: 20100421
  Transmission Date: 20101027
  Serious: Yes (Other)
  Sender: FDA-Public Use
  Company Number: 231745J10USA

PATIENT
  Age: 29 Year
  Sex: Female

DRUGS (1)
  1. REBIF [Suspect]
     Indication: MULTIPLE SCLEROSIS
     Dosage: 44 MCG, 3 IN 1 WK, SUBCUTANEOUS
     Route: 058
     Dates: start: 20090417, end: 20100325

REACTIONS (9)
  - ABNORMAL DREAMS [None]
  - ANXIETY [None]
  - CHEST DISCOMFORT [None]
  - CRYING [None]
  - DYSPNOEA [None]
  - EYE PAIN [None]
  - INSOMNIA [None]
  - PSYCHIATRIC SYMPTOM [None]
  - SINUSITIS [None]
